FAERS Safety Report 4974534-5 (Version None)
Quarter: 2006Q2

REPORT INFORMATION
  Report Type: 
  Country: None (occurrence: None)
  Receive Date: 20060410
  Receipt Date: 20060328
  Transmission Date: 20061013
  Serious: Yes (Hospitalization)
  Sender: FDA-Public Use
  Company Number: 2006042842

PATIENT
  Age: 51 Year
  Sex: Female
  Weight: 65 kg

DRUGS (4)
  1. LYRICA [Suspect]
     Indication: PAIN
     Dates: start: 20060309, end: 20060312
  2. FLUOXETINE [Concomitant]
  3. ACETAMINOPHEN [Concomitant]
  4. OXYCODONE (OXYCODONE) [Concomitant]

REACTIONS (5)
  - BACK PAIN [None]
  - CONVULSION [None]
  - NEUROLOGICAL SYMPTOM [None]
  - SEDATION [None]
  - TREMOR [None]
